FAERS Safety Report 10610190 (Version 1)
Quarter: 2014Q4

REPORT INFORMATION
  Report Type: Spontaneous
  Country: DE (occurrence: None)
  Receive Date: 20141124
  Receipt Date: 20141124
  Transmission Date: 20150529
  Serious: Yes (Hospitalization)
  Sender: FDA-Public Use
  Company Number: IMP_08210_2014

PATIENT
  Age: 56 Year
  Sex: Female

DRUGS (4)
  1. PSYLLIUM [Suspect]
     Active Substance: PLANTAGO SEED
     Indication: ANAL FISSURE
     Dosage: (DF)
  2. LEVOTHYROXINE [Concomitant]
     Active Substance: LEVOTHYROXINE
  3. FLUDROCORTISONE [Suspect]
     Active Substance: FLUDROCORTISONE
     Indication: ADRENAL INSUFFICIENCY
  4. PREDNISOLONE. [Suspect]
     Active Substance: PREDNISOLONE
     Indication: ADRENAL INSUFFICIENCY

REACTIONS (9)
  - Abdominal pain [None]
  - Asthenia [None]
  - Nausea [None]
  - Anal fissure [None]
  - Adrenal insufficiency [None]
  - Adrenocortical insufficiency acute [None]
  - Fatigue [None]
  - Drug interaction [None]
  - Abdominal tenderness [None]
